FAERS Safety Report 7913789-1 (Version None)
Quarter: 2011Q4

REPORT INFORMATION
  Report Type: 
  Country: None (occurrence: None)
  Receive Date: 20111115
  Receipt Date: 20111109
  Transmission Date: 20120403
  Serious: No
  Sender: FDA-Public Use
  Company Number: JP-JNJFOC-20111011420

PATIENT
  Age: 56 Year
  Sex: Male

DRUGS (3)
  1. REMICADE [Suspect]
     Indication: PRODUCT USED FOR UNKNOWN INDICATION
     Route: 042
     Dates: start: 20110811, end: 20110811
  2. REMICADE [Suspect]
     Route: 042
     Dates: start: 20100726
  3. REMICADE [Suspect]
     Route: 042
     Dates: start: 20110901, end: 20110901

REACTIONS (1)
  - ANTINUCLEAR ANTIBODY INCREASED [None]
